FAERS Safety Report 23032774 (Version 1)
Quarter: 2023Q4

REPORT INFORMATION
  Report Type: Spontaneous
  Country: US (occurrence: None)
  Receive Date: 20231004
  Receipt Date: 20231004
  Transmission Date: 20240109
  Serious: Yes (Other)
  Sender: FDA-Public Use
  Company Number: None

PATIENT
  Age: 38 Year
  Sex: Female
  Weight: 58.51 kg

DRUGS (1)
  1. TRUXIMA [Suspect]
     Active Substance: RITUXIMAB-ABBS
     Dosage: OTHER FREQUENCY : EVERY6MONTHS ;?
     Route: 041
     Dates: start: 20231004, end: 20231004

REACTIONS (3)
  - Throat irritation [None]
  - Cough [None]
  - Infusion related reaction [None]

NARRATIVE: CASE EVENT DATE: 20231004
